FAERS Safety Report 15353944 (Version 1)
Quarter: 2018Q3

REPORT INFORMATION
  Report Type: Spontaneous
  Country: IE (occurrence: IE)
  Receive Date: 20180905
  Receipt Date: 20180905
  Transmission Date: 20181010
  Serious: Yes (Hospitalization)
  Sender: FDA-Public Use
  Company Number: IE-BAXTER-2018BAX021665

PATIENT
  Sex: Female
  Weight: 73 kg

DRUGS (8)
  1. WATER FOR INJECTION [Suspect]
     Active Substance: WATER
     Dosage: WATER FOR INJECTIONS COMPOUNDED WITH SODIUM CHLORIDE 0.9% AND PEMBROLIZUMAB 150MG?22 DOSES OVER APPR
     Route: 042
     Dates: start: 20170413, end: 20180720
  2. KEYTRUDA [Suspect]
     Active Substance: PEMBROLIZUMAB
     Indication: METASTATIC MALIGNANT MELANOMA
     Dosage: KEYTRUDA (PEMBROLIZUMAB) 50MG POWDER FOR CONCENTRATE SOLUTION FOR INFUSION.
     Route: 042
     Dates: start: 20161007, end: 20170526
  3. SODIUM CHLORIDE INTRAVENOUS INFUSION BP 0.9% W/V [Suspect]
     Active Substance: SODIUM CHLORIDE
     Dosage: SODIUM CHLORIDE 0.9% COMPOUNDED WITH PEMBROLIZUMAB 150MG, 22 DOSES OVER APPROXIMATELY 16 MONTHS BETW
     Route: 042
     Dates: start: 20170413, end: 20180720
  4. KEYTRUDA [Suspect]
     Active Substance: PEMBROLIZUMAB
     Dosage: KEYTRUDA (PEMBROLIZUMAB) 50MG POWDER FOR CONCENTRATE SOLUTION FOR INFUSION.
     Route: 042
     Dates: start: 20170616, end: 20180406
  5. SODIUM CHLORIDE INTRAVENOUS INFUSION BP 0.9% W/V [Suspect]
     Active Substance: SODIUM CHLORIDE
     Indication: MEDICATION DILUTION
     Dosage: SODIUM CHLORIDE 0.9% COMPOUNDED WITH PEMBROLIZUMAB 137.5MG
     Route: 042
     Dates: start: 20161007, end: 20170526
  6. XANAX [Concomitant]
     Active Substance: ALPRAZOLAM
     Indication: ANXIETY
     Route: 065
     Dates: start: 201608
  7. WATER FOR INJECTION [Suspect]
     Active Substance: WATER
     Indication: MEDICATION DILUTION
     Dosage: WATER FOR INJECTIONS COMPOUNDED WITH SODIUM CHLORIDE 0.9% AND PEMBROLIZUMAB 137.5MG
     Route: 042
     Dates: start: 20161007, end: 20170526
  8. KEYTRUDA [Suspect]
     Active Substance: PEMBROLIZUMAB
     Dosage: PEMBROLIZUMAB 150MG, 22 DOSES OVER APPROXIMATELY 16 MONTHS BETWEEN 13?APR?2017 TO 20?JUL?2018?KEYTRU
     Route: 042
     Dates: start: 20170413, end: 20180720

REACTIONS (1)
  - Psoriasis [Unknown]
